FAERS Safety Report 8212424-5 (Version None)
Quarter: 2012Q1

REPORT INFORMATION
  Report Type: 
  Country: None (occurrence: None)
  Receive Date: 20120315
  Receipt Date: 20120307
  Transmission Date: 20120608
  Serious: Yes (Hospitalization)
  Sender: FDA-Public Use
  Company Number: US-BAYER-2011-111083

PATIENT
  Age: 38 Year
  Sex: Female
  Weight: 72 kg

DRUGS (6)
  1. YASMIN [Suspect]
     Dosage: UNK
     Route: 048
     Dates: start: 20030529, end: 20031103
  2. DROSPIRENONE AND ETHINYL ESTRADIOL [Suspect]
     Dosage: UNK
     Route: 048
     Dates: start: 20030529, end: 20031103
  3. CELEXA [Concomitant]
     Dosage: UNK
     Route: 048
     Dates: start: 20030926
  4. DARVOCET-N 50 [Concomitant]
     Dosage: 100MG/650MG
     Route: 048
     Dates: start: 20030926
  5. YAZ [Suspect]
     Dosage: UNK
     Route: 048
     Dates: start: 20030529, end: 20031103
  6. MOTRIN [Concomitant]
     Dosage: 800 MG, UNK
     Route: 048
     Dates: start: 20030926

REACTIONS (6)
  - INJURY [None]
  - EMOTIONAL DISTRESS [None]
  - PULMONARY EMBOLISM [None]
  - PAIN [None]
  - GENERAL PHYSICAL HEALTH DETERIORATION [None]
  - ANXIETY [None]
